FAERS Safety Report 10408941 (Version 1)
Quarter: 2014Q3

REPORT INFORMATION
  Report Type: Spontaneous
  Country: GB (occurrence: None)
  Receive Date: 20140822
  Receipt Date: 20140822
  Transmission Date: 20150326
  Serious: Yes (Other)
  Sender: FDA-Public Use
  Company Number: AUR-APL-2014-08820

PATIENT
  Age: 33 Year
  Sex: Male

DRUGS (1)
  1. TERBINAFINE (TERBINAFINE) [Suspect]
     Active Substance: TERBINAFINE
     Indication: ONYCHOMYCOSIS
     Dates: start: 201407, end: 201407

REACTIONS (3)
  - Polyarthritis [None]
  - Urticaria [None]
  - Arthritis [None]

NARRATIVE: CASE EVENT DATE: 201407
